FAERS Safety Report 20075522 (Version 4)
Quarter: 2021Q4

REPORT INFORMATION
  Report Type: Spontaneous
  Country: US (occurrence: US)
  Receive Date: 20211116
  Receipt Date: 20211210
  Transmission Date: 20220303
  Serious: Yes (Other)
  Sender: FDA-Public Use
  Company Number: US-APOTEX-2021AP045299

PATIENT
  Sex: Female

DRUGS (2)
  1. CLOPIDOGREL [Suspect]
     Active Substance: CLOPIDOGREL BISULFATE
     Indication: Transient ischaemic attack
     Dosage: 1 DOSAGE FORM, Q.AM
     Route: 065
  2. EZETIMIBE [Concomitant]
     Active Substance: EZETIMIBE
     Indication: Blood cholesterol abnormal
     Dosage: UNK
     Route: 065

REACTIONS (5)
  - Haemorrhagic diathesis [Not Recovered/Not Resolved]
  - Product odour abnormal [Unknown]
  - Impaired healing [Not Recovered/Not Resolved]
  - Polycythaemia [Not Recovered/Not Resolved]
  - Increased tendency to bruise [Recovered/Resolved]
